FAERS Safety Report 6315120-4 (Version None)
Quarter: 2009Q3

REPORT INFORMATION
  Report Type: 
  Country: None (occurrence: None)
  Receive Date: 20090817
  Receipt Date: 20090806
  Transmission Date: 20100115
  Serious: Yes (Disabling)
  Sender: FDA-Public Use
  Company Number: GXKR2009GB08954

PATIENT
  Age: 75 Year
  Sex: Male

DRUGS (9)
  1. AMLODIPINE [Suspect]
     Indication: CARDIOVASCULAR DISORDER
     Dosage: 5 MG, ORAL
     Route: 048
     Dates: start: 20050817
  2. CO-CODAMOL (NGX) (ACETAMINOPHEN (PARACETAMOL), CODEINE PHOSPHATE) UNKN [Suspect]
     Indication: PAIN
     Dosage: 8 DF/DAY, ORAL
     Route: 048
     Dates: start: 20070718, end: 20090306
  3. IRBESARTAN [Suspect]
     Indication: CARDIOVASCULAR DISORDER
     Dosage: 75 MG, ORAL
     Route: 048
     Dates: start: 20060203
  4. SIMVASTATIN [Suspect]
     Indication: CARDIOVASCULAR DISORDER
     Dosage: 40 MG, ORAL
     Route: 048
     Dates: start: 20060203, end: 20090713
  5. CARVEDILOL [Suspect]
     Indication: CARDIOVASCULAR DISORDER
     Dosage: 12.5 MG, ORAL
     Route: 048
     Dates: start: 20081021, end: 20090710
  6. FUROSEMIDE [Suspect]
     Indication: CARDIOVASCULAR DISORDER
     Dosage: 40 MG, ORAL
     Route: 048
     Dates: start: 20050817, end: 20090713
  7. RABEPRAZOLE SODIUM [Suspect]
     Dosage: 20 MG, ORAL
     Route: 048
     Dates: start: 20060518, end: 20090708
  8. ZIMOVANE (ZOPICLONE) [Suspect]
     Indication: INSOMNIA
     Dates: start: 20051014
  9. FERROUS SULPHATE (FERROUS SULFATE) [Concomitant]

REACTIONS (2)
  - ANGIOEDEMA [None]
  - SWOLLEN TONGUE [None]
